FAERS Safety Report 6946379-8 (Version None)
Quarter: 2010Q3

REPORT INFORMATION
  Report Type: 
  Country: None (occurrence: None)
  Receive Date: 20100827
  Receipt Date: 20090825
  Transmission Date: 20110219
  Serious: No
  Sender: FDA-Public Use
  Company Number: US-ABBOTT-09P-163-0561194-00

PATIENT
  Sex: Male

DRUGS (14)
  1. NIASPAN [Suspect]
     Indication: BLOOD CHOLESTEROL INCREASED
     Dates: start: 20090222, end: 20090401
  2. NIASPAN [Suspect]
     Dates: start: 20090401, end: 20090701
  3. NIASPAN [Suspect]
     Dates: start: 20090701
  4. PREVACHOL [Concomitant]
     Indication: BLOOD CHOLESTEROL INCREASED
  5. TYLENOL-500 [Concomitant]
     Indication: ARTHRALGIA
     Dosage: 1000MG QAM AND 500MG QHS
  6. ASPIRIN [Concomitant]
     Indication: PRODUCT USED FOR UNKNOWN INDICATION
  7. FLONASE [Concomitant]
     Indication: PRODUCT USED FOR UNKNOWN INDICATION
  8. B100 COMPLEX TIME RELEASED B3 COMPONENT [Concomitant]
     Indication: MEDICAL DIET
  9. VIT C [Concomitant]
     Indication: MEDICAL DIET
     Route: 048
  10. FISH OIL [Concomitant]
     Indication: MEDICAL DIET
     Route: 048
  11. SUDAFED S.A. [Concomitant]
     Indication: PRODUCT USED FOR UNKNOWN INDICATION
  12. BENADRYL [Concomitant]
     Indication: INSOMNIA
     Route: 048
  13. MAGENESIUM [Concomitant]
     Indication: MEDICAL DIET
     Route: 048
  14. CALCIUM [Concomitant]
     Indication: MEDICAL DIET
     Route: 048

REACTIONS (1)
  - FLUSHING [None]
